FAERS Safety Report 24824985 (Version 4)
Quarter: 2025Q1

REPORT INFORMATION
  Report Type: Report from Study
  Country: BR (occurrence: BR)
  Receive Date: 20250109
  Receipt Date: 20250127
  Transmission Date: 20250408
  Serious: Yes (Other)
  Sender: MYLAN
  Company Number: BR-MYLANLABS-2025M1001772

PATIENT
  Sex: Female
  Weight: 53 kg

DRUGS (2)
  1. XALATAN [Suspect]
     Active Substance: LATANOPROST
     Indication: Glaucoma
     Dosage: 1 GTT DROPS, PM (ONE DROP IN EACH EYE, AT NIGHT)
     Route: 047
     Dates: start: 20191015
  2. XALATAN [Suspect]
     Active Substance: LATANOPROST
     Dosage: 1 GTT DROPS, PM (ONE DROP IN EACH EYE, AT NIGHT)
     Route: 047

REACTIONS (2)
  - Angle closure glaucoma [Recovered/Resolved]
  - Cataract [Not Recovered/Not Resolved]
